FAERS Safety Report 5385324-6 (Version None)
Quarter: 2007Q3

REPORT INFORMATION
  Report Type: 
  Country: None (occurrence: None)
  Receive Date: 20070709
  Receipt Date: 20070709
  Transmission Date: 20080115
  Serious: Yes (Other)
  Sender: FDA-Public Use
  Company Number: None

PATIENT
  Age: 43 Year
  Sex: Female
  Weight: 64 kg

DRUGS (2)
  1. DOXYALIMINE 5.1MG [Suspect]
     Indication: BACK PAIN
     Dosage: 1 NOCTE PO
     Route: 048
     Dates: start: 20070706, end: 20070707
  2. DOXYALIMINE 5.1MG [Suspect]
     Indication: INSOMNIA
     Dosage: 1 NOCTE PO
     Route: 048
     Dates: start: 20070706, end: 20070707

REACTIONS (2)
  - AMNESIA [None]
  - SOMNOLENCE [None]
